FAERS Safety Report 9560414 (Version 3)
Quarter: 2013Q4

REPORT INFORMATION
  Report Type: Spontaneous
  Country: CA (occurrence: CA)
  Receive Date: 20130927
  Receipt Date: 20131007
  Transmission Date: 20140711
  Serious: Yes (Hospitalization, Other)
  Sender: FDA-Public Use
  Company Number: CA-AMGEN-CANSP2013067153

PATIENT
  Sex: Male

DRUGS (1)
  1. XGEVA [Suspect]
     Indication: PROSTATE CANCER
     Dosage: UNK
     Route: 065
     Dates: start: 201308

REACTIONS (5)
  - Renal failure [Unknown]
  - Asthenia [Unknown]
  - Malignant neoplasm progression [Not Recovered/Not Resolved]
  - Malnutrition [Unknown]
  - Hypocalcaemia [Recovered/Resolved]
